FAERS Safety Report 4665826-8 (Version None)
Quarter: 2005Q2

REPORT INFORMATION
  Report Type: 
  Country: None (occurrence: None)
  Receive Date: 20050519
  Receipt Date: 20050309
  Transmission Date: 20051028
  Serious: No
  Sender: FDA-Public Use
  Company Number: US-GLAXOSMITHKLINE-A0549056A

PATIENT
  Age: 83 Year
  Sex: Male

DRUGS (2)
  1. AVODART [Suspect]
     Indication: ILL-DEFINED DISORDER
     Dosage: .5MG PER DAY
     Route: 048
     Dates: start: 20050120
  2. WARFARIN [Suspect]
     Route: 048

REACTIONS (3)
  - BLOOD URINE PRESENT [None]
  - DRUG INTERACTION [None]
  - PROSTATIC HAEMORRHAGE [None]
